FAERS Safety Report 6262078-2 (Version None)
Quarter: 2009Q3

REPORT INFORMATION
  Report Type: 
  Country: None (occurrence: None)
  Receive Date: 20090709
  Receipt Date: 20090616
  Transmission Date: 20100115
  Serious: Yes (Other)
  Sender: FDA-Public Use
  Company Number: ES-JNJFOC-20090702537

PATIENT
  Age: 64 Year
  Sex: Female

DRUGS (7)
  1. HALOPERIDOL [Suspect]
     Indication: DRUG USE FOR UNKNOWN INDICATION
     Route: 065
  2. CLOZAPINE [Suspect]
     Indication: DRUG USE FOR UNKNOWN INDICATION
     Route: 065
  3. OLANZAPINE [Suspect]
     Indication: DRUG USE FOR UNKNOWN INDICATION
     Route: 065
  4. VALPROATE SODIUM [Suspect]
     Route: 065
  5. VALPROATE SODIUM [Suspect]
     Indication: DRUG USE FOR UNKNOWN INDICATION
     Route: 065
  6. BIPERIDEN HYDROCHLORIDE TAB [Concomitant]
     Indication: SLEEP DISORDER
     Route: 065
  7. LEVOMEPROMAZINE [Concomitant]
     Indication: SLEEP DISORDER
     Dosage: AT NIGHT
     Route: 065

REACTIONS (1)
  - PLEURAL EFFUSION [None]
